FAERS Safety Report 9757391 (Version 1)
Quarter: 2013Q4

REPORT INFORMATION
  Report Type: Report from Study
  Country: CA (occurrence: CA)
  Receive Date: 20131214
  Receipt Date: 20131214
  Transmission Date: 20140711
  Serious: Yes (Other)
  Sender: FDA-Public Use
  Company Number: CA-IPSEN BIOPHARMACEUTICALS, INC.-2013-5147

PATIENT
  Age: 25 Year
  Sex: 0

DRUGS (1)
  1. SOMATULINE [Suspect]
     Indication: PRODUCT USED FOR UNKNOWN INDICATION
     Dosage: 90 MG
     Route: 030

REACTIONS (2)
  - Pituitary tumour [Not Recovered/Not Resolved]
  - Incorrect route of drug administration [Unknown]
